FAERS Safety Report 18172997 (Version 2)
Quarter: 2020Q3

REPORT INFORMATION
  Report Type: Spontaneous
  Country: US (occurrence: US)
  Receive Date: 20200819
  Receipt Date: 20200824
  Transmission Date: 20201103
  Serious: No
  Sender: FDA-Public Use
  Company Number: US-BEH-2020121433

PATIENT
  Age: 13 Year
  Sex: Female

DRUGS (9)
  1. MOTRIN [Concomitant]
     Active Substance: IBUPROFEN
     Indication: INFUSION SITE PAIN
  2. PREDNISONE. [Concomitant]
     Active Substance: PREDNISONE
     Indication: HEADACHE
  3. PREDNISONE. [Concomitant]
     Active Substance: PREDNISONE
     Indication: PRURITUS
  4. MOTRIN [Concomitant]
     Active Substance: IBUPROFEN
     Indication: HEADACHE
  5. HIZENTRA [Suspect]
     Active Substance: HUMAN IMMUNOGLOBULIN G
     Indication: POLYNEUROPATHY
     Dosage: 20 GRAM, QOW
     Route: 058
     Dates: start: 20200730
  6. HIZENTRA [Suspect]
     Active Substance: HUMAN IMMUNOGLOBULIN G
     Dosage: 20 GRAM, QOW
     Route: 058
     Dates: start: 20200813
  7. HIZENTRA [Suspect]
     Active Substance: HUMAN IMMUNOGLOBULIN G
     Dosage: UNK
     Route: 058
     Dates: start: 2019
  8. PREDNISONE. [Concomitant]
     Active Substance: PREDNISONE
     Indication: INFUSION SITE PAIN
  9. MOTRIN [Concomitant]
     Active Substance: IBUPROFEN
     Indication: PRURITUS

REACTIONS (9)
  - Swelling [Unknown]
  - Infusion site pain [Unknown]
  - Muscle twitching [Unknown]
  - No adverse event [Unknown]
  - Pruritus [Unknown]
  - Product use in unapproved indication [Unknown]
  - Dyspnoea [Recovered/Resolved]
  - Headache [Unknown]
  - Pain [Unknown]

NARRATIVE: CASE EVENT DATE: 20200813
